FAERS Safety Report 6332579-7 (Version None)
Quarter: 2009Q3

REPORT INFORMATION
  Report Type: 
  Country: None (occurrence: None)
  Receive Date: 20090827
  Receipt Date: 20090827
  Transmission Date: 20100115
  Serious: No
  Sender: FDA-Public Use
  Company Number: None

PATIENT
  Age: 30 Year
  Sex: Male
  Weight: 90.7194 kg

DRUGS (1)
  1. ALLI [Suspect]
     Indication: OVERWEIGHT
     Dosage: 60MG 3 X DAILY PO
     Route: 048
     Dates: start: 20090122, end: 20090601

REACTIONS (1)
  - FACIAL PALSY [None]
